FAERS Safety Report 8159855-X (Version None)
Quarter: 2012Q1

REPORT INFORMATION
  Report Type: 
  Country: None (occurrence: None)
  Receive Date: 20120223
  Receipt Date: 20120126
  Transmission Date: 20120608
  Serious: Yes (Hospitalization)
  Sender: FDA-Public Use
  Company Number: JP-MERCK-1202USA02840

PATIENT
  Age: 89 Year
  Sex: Male

DRUGS (2)
  1. DECADRON [Suspect]
     Indication: PROSTATE CANCER
     Route: 048
     Dates: start: 20120108
  2. URIEF [Concomitant]
     Route: 048

REACTIONS (2)
  - THIRST [None]
  - OEDEMA PERIPHERAL [None]
